FAERS Safety Report 4683546-0 (Version None)
Quarter: 2005Q2

REPORT INFORMATION
  Report Type: 
  Country: None (occurrence: None)
  Receive Date: 20050607
  Receipt Date: 20031125
  Transmission Date: 20051028
  Serious: Yes (Other)
  Sender: FDA-Public Use
  Company Number: GB-SANOFI-SYNTHELABO-D01200301758

PATIENT
  Sex: Male
  Weight: 63.5 kg

DRUGS (13)
  1. SR57746 [Suspect]
     Route: 048
     Dates: start: 20030703
  2. OXALIPLATIN [Suspect]
     Route: 042
     Dates: start: 20030925, end: 20030925
  3. FLUOROURACIL [Suspect]
     Dosage: 400 MG/M2 AS IV BOLUS THEN 600 MG/M2 AS 22 HOURS CONTINUOUS INFUSION D1-D2 Q2W
     Route: 042
     Dates: start: 20030925, end: 20030927
  4. LEUCOVORIN [Suspect]
     Dosage: 200 MG/M2 AS 2 HOURS INFUSION ON D1-D2 Q2W
     Route: 042
     Dates: start: 20030925, end: 20030926
  5. COPROXAMOL [Concomitant]
     Dosage: UNK
     Route: 065
     Dates: start: 20030703
  6. PARACETAMOL [Concomitant]
     Dosage: UNK
     Route: 065
     Dates: start: 20030612
  7. WARFARIN [Concomitant]
     Dosage: UNK
     Route: 065
     Dates: start: 20030617
  8. METOCLOPRAMIDE [Concomitant]
     Dosage: UNK
     Route: 065
     Dates: start: 20030705
  9. DEXAMETHASONE [Concomitant]
     Dosage: UNK
     Route: 065
     Dates: start: 20030703, end: 20031008
  10. ONDANSETRON [Concomitant]
     Dosage: UNK
     Route: 065
     Dates: start: 20030703
  11. SENNA [Concomitant]
     Dosage: UNK
     Route: 065
     Dates: start: 20030718
  12. RANITIDINE [Concomitant]
     Dosage: UNK
     Route: 065
     Dates: start: 20030903
  13. NYSTATIN [Concomitant]
     Dosage: UNK
     Route: 065
     Dates: start: 20030929

REACTIONS (6)
  - DIABETES MELLITUS NON-INSULIN-DEPENDENT [None]
  - DRY MOUTH [None]
  - HYDRONEPHROSIS [None]
  - INTERVERTEBRAL DISC DEGENERATION [None]
  - LETHARGY [None]
  - MUSCLE SPASMS [None]
